FAERS Safety Report 8379046-7 (Version None)
Quarter: 2012Q2

REPORT INFORMATION
  Report Type: 
  Country: None (occurrence: None)
  Receive Date: 20120522
  Receipt Date: 20120522
  Transmission Date: 20120825
  Serious: No
  Sender: FDA-Public Use
  Company Number: None

PATIENT
  Sex: Female

DRUGS (1)
  1. RISPERDAL [Suspect]
     Dosage: 10 MLG 2 TIMES A MONTH WEST RIVER HEALTH CLINIC IN LEMMON

REACTIONS (8)
  - HYPERKERATOSIS [None]
  - FLATULENCE [None]
  - GOUT [None]
  - SOMNOLENCE [None]
  - YAWNING [None]
  - ASTHENIA [None]
  - DYSPEPSIA [None]
  - BALANCE DISORDER [None]
